FAERS Safety Report 23242162 (Version 1)
Quarter: 2023Q4

REPORT INFORMATION
  Report Type: Spontaneous
  Country: CA (occurrence: CA)
  Receive Date: 20231129
  Receipt Date: 20231129
  Transmission Date: 20240109
  Serious: Yes (Other)
  Sender: FDA-Public Use
  Company Number: CA-MYLANLABS-2023M1125062

PATIENT
  Age: 38 Year
  Sex: Female

DRUGS (3)
  1. ADALIMUMAB [Suspect]
     Active Substance: ADALIMUMAB\ISOPROPYL ALCOHOL
     Indication: Hidradenitis
     Dosage: 1 DOSAGE FORM
     Route: 058
  2. KEPPRA [Suspect]
     Active Substance: LEVETIRACETAM
     Indication: Seizure
     Dosage: UNK
     Route: 065
  3. DOXYCYCLINE [Concomitant]
     Active Substance: DOXYCYCLINE
     Indication: Product used for unknown indication
     Dosage: UNK
     Route: 065

REACTIONS (13)
  - Dry skin [Not Recovered/Not Resolved]
  - Seizure [Not Recovered/Not Resolved]
  - Sinus headache [Not Recovered/Not Resolved]
  - Skin exfoliation [Not Recovered/Not Resolved]
  - Swelling of eyelid [Not Recovered/Not Resolved]
  - Eyelid skin dryness [Not Recovered/Not Resolved]
  - Eyelids pruritus [Not Recovered/Not Resolved]
  - Fatigue [Not Recovered/Not Resolved]
  - Eczema [Not Recovered/Not Resolved]
  - Erythema [Not Recovered/Not Resolved]
  - Eye swelling [Not Recovered/Not Resolved]
  - Insomnia [Not Recovered/Not Resolved]
  - Nasopharyngitis [Not Recovered/Not Resolved]
